FAERS Safety Report 7407202-0 (Version None)
Quarter: 2011Q2

REPORT INFORMATION
  Report Type: 
  Country: None (occurrence: None)
  Receive Date: 20110411
  Receipt Date: 20110404
  Transmission Date: 20111010
  Serious: Yes (Hospitalization)
  Sender: FDA-Public Use
  Company Number: CO-B.I. PHARMACEUTICALS,INC./RIDGEFIELD-2011-RA-00104RA

PATIENT
  Sex: Male
  Weight: 89 kg

DRUGS (3)
  1. JANUMET [Concomitant]
     Indication: TYPE 2 DIABETES MELLITUS
     Dosage: 500/50 MG
     Route: 048
  2. TELMISARTAN/AMLODIPINE [Suspect]
     Dosage: 40/10 MG DAILY
     Route: 048
     Dates: start: 20110305, end: 20110311
  3. TELMISARTAN/AMLODIPINE [Suspect]
     Indication: HYPERTENSION
     Dosage: STRENGTH: 80/10 MG; DAILY DOSE: 80/10 MG
     Route: 048
     Dates: start: 20110304, end: 20110305

REACTIONS (2)
  - CEREBROVASCULAR ACCIDENT [None]
  - VERTIGO [None]
